FAERS Safety Report 5222655-4 (Version None)
Quarter: 2007Q1

REPORT INFORMATION
  Report Type: 
  Country: None (occurrence: None)
  Receive Date: 20070124
  Receipt Date: 20070115
  Transmission Date: 20070707
  Serious: Yes (Other)
  Sender: FDA-Public Use
  Company Number: HQWYE970209JUL04

PATIENT
  Age: 61 Year
  Sex: Female
  Weight: 118.04 kg

DRUGS (4)
  1. PREMPRO [Suspect]
     Dosage: ORAL
     Route: 048
     Dates: start: 19961108, end: 19970721
  2. MEDROXYPROGESTERONE [Suspect]
     Dosage: ORAL
     Route: 048
     Dates: start: 19970721, end: 20020826
  3. PREMARIN [Suspect]
     Dosage: ORAL
     Route: 048
     Dates: start: 19970721, end: 20020826
  4. PROVERA [Suspect]
     Dates: start: 19970721, end: 20020826

REACTIONS (11)
  - BREAST CANCER METASTATIC [None]
  - ENDOCARDITIS BACTERIAL [None]
  - METASTASES TO LYMPH NODES [None]
  - MITRAL VALVE DISEASE [None]
  - OESTROGEN RECEPTOR ASSAY POSITIVE [None]
  - PROGESTERONE RECEPTOR ASSAY POSITIVE [None]
  - SCOLIOSIS [None]
  - SEPTIC EMBOLUS [None]
  - SPINAL OSTEOARTHRITIS [None]
  - TRANSIENT ISCHAEMIC ATTACK [None]
  - WEIGHT INCREASED [None]
